FAERS Safety Report 15406672 (Version 1)
Quarter: 2018Q3

REPORT INFORMATION
  Report Type: Spontaneous
  Country: US (occurrence: US)
  Receive Date: 20180920
  Receipt Date: 20180920
  Transmission Date: 20181010
  Serious: No
  Sender: FDA-Public Use
  Company Number: US-WELLSTAT THERAPEUTICS CORPORATION-2055162

PATIENT
  Age: 69 Year
  Sex: Female

DRUGS (2)
  1. FLUOROURACIL. [Concomitant]
     Active Substance: FLUOROURACIL
  2. VISTOGARD [Suspect]
     Active Substance: URIDINE TRIACETATE
     Indication: CHEMOTHERAPY TOXICITY ATTENUATION
     Route: 050
     Dates: start: 20180808

REACTIONS (2)
  - Medication error [Recovered/Resolved]
  - Complication associated with device [Recovered/Resolved]

NARRATIVE: CASE EVENT DATE: 20180810
